FAERS Safety Report 12913253 (Version 2)
Quarter: 2017Q3

REPORT INFORMATION
  Report Type: Spontaneous
  Country: JP (occurrence: JP)
  Receive Date: 20161104
  Receipt Date: 20170831
  Transmission Date: 20171127
  Serious: Yes (Other)
  Sender: FDA-Public Use
  Company Number: JP-HQ SPECIALTY-JP-2016INT000938

PATIENT
  Age: 81 Year
  Sex: Female
  Weight: 43 kg

DRUGS (13)
  1. ROCURONIUM BROMIDE. [Concomitant]
     Active Substance: ROCURONIUM BROMIDE
     Indication: HYPOTONIA
     Dosage: UNK
     Dates: start: 20160328, end: 20160328
  2. REMIFENTANIL HYDROCHLORIDE [Concomitant]
     Active Substance: REMIFENTANIL HYDROCHLORIDE
     Indication: ANALGESIC THERAPY
     Dosage: UNK
     Dates: start: 20160328, end: 20160328
  3. DESFLURANE. [Concomitant]
     Active Substance: DESFLURANE
     Indication: MAINTENANCE OF ANAESTHESIA
     Dosage: UNK
     Dates: start: 20160328, end: 20160328
  4. FENTANYL. [Concomitant]
     Active Substance: FENTANYL
     Indication: SEDATION
     Dosage: UNK
     Dates: start: 20160328, end: 20160329
  5. PROPOFOL. [Concomitant]
     Active Substance: PROPOFOL
     Indication: INDUCTION OF ANAESTHESIA
     Dosage: UNK
     Dates: start: 20160328, end: 20160328
  6. ATROPINE SULFATE HYDRATE [Concomitant]
     Active Substance: ATROPINE SULFATE
     Indication: BRADYCARDIA
     Dosage: UNK
     Dates: start: 20160328, end: 20160328
  7. DOPAMINE HYDROCHLORIDE. [Concomitant]
     Active Substance: DOPAMINE HYDROCHLORIDE
     Indication: VASOPRESSIVE THERAPY
     Dosage: UNK
     Dates: start: 20160328, end: 20160328
  8. DEXMEDETOMIDINE HYDROCHLORIDE. [Suspect]
     Active Substance: DEXMEDETOMIDINE HYDROCHLORIDE
     Indication: POSTOPERATIVE ANALGESIA
  9. EPHEDRINE HYDROCHLORIDE [Concomitant]
     Active Substance: EPHEDRINE HYDROCHLORIDE
     Indication: VASOPRESSIVE THERAPY
     Dosage: UNK
     Dates: start: 20160328, end: 20160328
  10. DEXMEDETOMIDINE HYDROCHLORIDE. [Suspect]
     Active Substance: DEXMEDETOMIDINE HYDROCHLORIDE
     Indication: SEDATION
     Dosage: 200 MCG, 0.4 TO 2 MCG/KG/HR
     Route: 042
     Dates: start: 20160328, end: 20160329
  11. FENTANYL. [Concomitant]
     Active Substance: FENTANYL
     Indication: POSTOPERATIVE ANALGESIA
  12. ROPION [Concomitant]
     Active Substance: FLURBIPROFEN AXETIL
     Indication: ANALGESIC THERAPY
     Dosage: UNK
     Dates: start: 20160328, end: 20160328
  13. VECURONIUM BROMIDE. [Concomitant]
     Active Substance: VECURONIUM BROMIDE
     Indication: HYPOTONIA
     Dosage: UNK
     Dates: start: 20160328, end: 20160328

REACTIONS (8)
  - Electrocardiogram T wave biphasic [Unknown]
  - Chest pain [Unknown]
  - Blood pressure systolic decreased [Recovered/Resolved]
  - Arrhythmia supraventricular [Unknown]
  - Electrocardiogram ST segment elevation [Recovered/Resolved]
  - Nodal rhythm [Unknown]
  - Bradycardia [Unknown]
  - Arteriospasm coronary [Unknown]

NARRATIVE: CASE EVENT DATE: 201603
